FAERS Safety Report 12579471 (Version 9)
Quarter: 2018Q1

REPORT INFORMATION
  Report Type: Spontaneous
  Country: US (occurrence: US)
  Receive Date: 20160721
  Receipt Date: 20180117
  Transmission Date: 20180508
  Serious: No
  Sender: FDA-Public Use
  Company Number: US-PFIZER INC-2016017739

PATIENT
  Age: 63 Year
  Sex: Female

DRUGS (5)
  1. XELJANZ [Suspect]
     Active Substance: TOFACITINIB CITRATE
     Dosage: 5 MG, UNK
     Dates: start: 201703, end: 20171106
  2. XELJANZ [Suspect]
     Active Substance: TOFACITINIB CITRATE
     Dosage: 5 MG, UNK
     Dates: start: 20180115
  3. XELJANZ [Suspect]
     Active Substance: TOFACITINIB CITRATE
     Dosage: 5 MG, UNK
     Dates: start: 201610, end: 20171228
  4. XELJANZ [Suspect]
     Active Substance: TOFACITINIB CITRATE
     Dosage: 5 MG, UNK
     Dates: start: 201503
  5. XELJANZ [Suspect]
     Active Substance: TOFACITINIB CITRATE
     Dosage: 5 MG, UNK
     Dates: start: 20160112

REACTIONS (15)
  - Multiple allergies [Unknown]
  - Headache [Unknown]
  - Increased viscosity of upper respiratory secretion [Unknown]
  - Paranasal sinus discomfort [Unknown]
  - Urinary tract infection [Unknown]
  - Tooth infection [Unknown]
  - Disease recurrence [Unknown]
  - Respiratory tract congestion [Unknown]
  - Eye infection [Not Recovered/Not Resolved]
  - Fungal infection [Unknown]
  - Cough [Unknown]
  - Nasopharyngitis [Unknown]
  - Tongue blistering [Unknown]
  - Oropharyngeal pain [Unknown]
  - Pyrexia [Unknown]

NARRATIVE: CASE EVENT DATE: 20170815
